FAERS Safety Report 25461841 (Version 1)
Quarter: 2025Q2

REPORT INFORMATION
  Report Type: Spontaneous
  Country: PT (occurrence: PT)
  Receive Date: 20250620
  Receipt Date: 20250620
  Transmission Date: 20250717
  Serious: Yes (Life-Threatening)
  Sender: BAUSCH AND LOMB
  Company Number: PT-AUROBINDO-AUR-APL-2024-025742

PATIENT
  Age: 69 Year
  Sex: Female

DRUGS (1)
  1. ACYCLOVIR [Suspect]
     Active Substance: ACYCLOVIR
     Indication: Herpes simplex encephalitis
     Route: 042

REACTIONS (1)
  - Therapy non-responder [Unknown]
